FAERS Safety Report 11165765 (Version 1)
Quarter: 2015Q2

REPORT INFORMATION
  Report Type: Spontaneous
  Country: US (occurrence: None)
  Receive Date: 20150603
  Receipt Date: 20150603
  Transmission Date: 20150821
  Serious: Yes (Disabling)
  Sender: FDA-Public Use
  Company Number: None

PATIENT
  Age: 42 Year
  Sex: Female

DRUGS (4)
  1. CIPRO [Concomitant]
     Active Substance: CIPROFLOXACIN HYDROCHLORIDE
  2. PRE-NATAL RAINBOW LIGHT [Concomitant]
  3. NITROFURANTOIN MONO/MAC [Suspect]
     Active Substance: NITROFURANTOIN\NITROFURANTOIN MONOHYDRATE
     Indication: URINARY TRACT INFECTION
     Route: 048
     Dates: start: 20140112, end: 20140116
  4. PROGESTERONE. [Concomitant]
     Active Substance: PROGESTERONE

REACTIONS (4)
  - Parotitis [None]
  - Tendon disorder [None]
  - Hypersensitivity [None]
  - Tendon rupture [None]
